FAERS Safety Report 20326610 (Version 4)
Quarter: 2025Q2

REPORT INFORMATION
  Report Type: Spontaneous
  Country: ES (occurrence: ES)
  Receive Date: 20220112
  Receipt Date: 20250603
  Transmission Date: 20250717
  Serious: Yes (Other)
  Sender: SANOFI AVENTIS
  Company Number: ES-ASTPRD-AER-2021-01304

PATIENT
  Age: 67 Year
  Sex: Male

DRUGS (3)
  1. TAMSULOSIN HYDROCHLORIDE [Suspect]
     Active Substance: TAMSULOSIN HYDROCHLORIDE
     Indication: Benign prostatic hyperplasia
     Dosage: 0.4 MG, QD
     Route: 048
  2. EZETIMIBE [Concomitant]
     Active Substance: EZETIMIBE
     Indication: Blood cholesterol
     Route: 065
  3. AMLODIPINA [AMLODIPINE MALEATE] [Concomitant]
     Indication: Hypertension
     Route: 065

REACTIONS (7)
  - Mental impairment [Unknown]
  - Cerebral atrophy [Unknown]
  - Cerebral small vessel ischaemic disease [Unknown]
  - Dysarthria [Unknown]
  - Gambling disorder [Unknown]
  - Postural tremor [Not Recovered/Not Resolved]
  - Intention tremor [Not Recovered/Not Resolved]

NARRATIVE: CASE EVENT DATE: 20211213
